FAERS Safety Report 6486833-9 (Version None)
Quarter: 2009Q4

REPORT INFORMATION
  Report Type: 
  Country: None (occurrence: None)
  Receive Date: 20091210
  Receipt Date: 20091207
  Transmission Date: 20100525
  Serious: Yes (Death, Hospitalization)
  Sender: FDA-Public Use
  Company Number: PHHY2009MX46782

PATIENT
  Sex: Female

DRUGS (1)
  1. DIOVAN HCT [Suspect]
     Indication: HYPERTENSION
     Dosage: 2 TABLETS (160/25 MG) PER DAY
     Route: 048
     Dates: start: 20050401, end: 20090218

REACTIONS (4)
  - BRONCHOPNEUMONIA [None]
  - HYPERTENSION [None]
  - MULTI-ORGAN FAILURE [None]
  - RESPIRATORY ARREST [None]
